FAERS Safety Report 5508136-9 (Version None)
Quarter: 2007Q4

REPORT INFORMATION
  Report Type: 
  Country: None (occurrence: None)
  Receive Date: 20071106
  Receipt Date: 20071025
  Transmission Date: 20080405
  Serious: Yes (Other)
  Sender: FDA-Public Use
  Company Number: US-PFIZER INC-2007071524

PATIENT
  Sex: Female
  Weight: 52.6 kg

DRUGS (8)
  1. CHANTIX [Suspect]
     Indication: SMOKING CESSATION THERAPY
     Route: 048
  2. PREDNISONE [Suspect]
     Indication: RESPIRATORY DISTRESS
  3. LEXAPRO [Concomitant]
  4. AVALIDE [Concomitant]
  5. ALL OTHER THERAPEUTIC PRODUCTS [Concomitant]
  6. TRAZODONE HCL [Concomitant]
  7. ADVAIR DISKUS 100/50 [Concomitant]
  8. ALBUTEROL [Concomitant]

REACTIONS (7)
  - DIZZINESS [None]
  - FALL [None]
  - FEELING ABNORMAL [None]
  - LIMB INJURY [None]
  - MIDDLE INSOMNIA [None]
  - NERVOUSNESS [None]
  - PANIC REACTION [None]
